FAERS Safety Report 9245474 (Version 1)
Quarter: 2013Q2

REPORT INFORMATION
  Report Type: Report from Study
  Country: DE (occurrence: DE)
  Receive Date: 20130422
  Receipt Date: 20130422
  Transmission Date: 20140414
  Serious: Yes (Hospitalization)
  Sender: FDA-Public Use
  Company Number: DE-ROCHE-1117016

PATIENT
  Sex: Female

DRUGS (14)
  1. TOCILIZUMAB [Suspect]
     Indication: RHEUMATOID ARTHRITIS
     Route: 065
     Dates: start: 200902, end: 201004
  2. TOCILIZUMAB [Suspect]
     Route: 065
     Dates: start: 201110, end: 201202
  3. LEFLUNOMIDE [Suspect]
     Indication: RHEUMATOID ARTHRITIS
     Route: 065
     Dates: start: 200603, end: 201007
  4. LEFLUNOMIDE [Suspect]
     Route: 065
     Dates: start: 201011
  5. DECORTIN H [Suspect]
     Indication: PRODUCT USED FOR UNKNOWN INDICATION
     Route: 065
  6. CONCOR [Concomitant]
     Route: 065
  7. HCTZ [Concomitant]
     Route: 065
  8. PANTOZOL [Concomitant]
     Route: 065
  9. TILIDINE [Concomitant]
     Route: 065
  10. SERTRALINE [Concomitant]
  11. BISOPROLOL [Concomitant]
  12. IBUPROFEN [Concomitant]
  13. METHOTREXATE [Concomitant]
     Route: 065
     Dates: start: 200510, end: 200603
  14. METHOTREXATE [Concomitant]
     Route: 065

REACTIONS (9)
  - General physical health deterioration [Recovered/Resolved]
  - Arthritis infective [Recovered/Resolved]
  - Upper respiratory tract infection [Recovered/Resolved]
  - Lung disorder [Not Recovered/Not Resolved]
  - Gastritis erosive [Unknown]
  - Fibromyalgia [Unknown]
  - Anaemia [Unknown]
  - Cholelithiasis [Unknown]
  - Melaena [Unknown]
